FAERS Safety Report 20484720 (Version 2)
Quarter: 2022Q3

REPORT INFORMATION
  Report Type: Spontaneous
  Country: US (occurrence: US)
  Receive Date: 20220217
  Receipt Date: 20220811
  Transmission Date: 20221027
  Serious: Yes (Other)
  Sender: FDA-Public Use
  Company Number: US-TAKEDA-2022TUS011054

PATIENT

DRUGS (30)
  1. PANTOPRAZOLE [Suspect]
     Active Substance: PANTOPRAZOLE
     Indication: Gastrooesophageal reflux disease
     Dosage: 40 MILLIGRAM, QD
     Route: 048
     Dates: start: 2019
  2. PREVACID [Suspect]
     Active Substance: LANSOPRAZOLE
     Indication: Gastrooesophageal reflux disease
     Dosage: 30 MILLIGRAM, QD
     Route: 048
     Dates: start: 2009, end: 2017
  3. LANSOPRAZOLE [Suspect]
     Active Substance: LANSOPRAZOLE
     Indication: Gastrooesophageal reflux disease
     Dosage: 30 MILLIGRAM, QD
     Route: 048
     Dates: start: 2011
  4. PRILOSEC [Suspect]
     Active Substance: OMEPRAZOLE MAGNESIUM
     Indication: Gastrooesophageal reflux disease
     Dosage: 40 MILLIGRAM, QD
     Route: 048
     Dates: start: 2009, end: 2017
  5. OMEPRAZOLE [Suspect]
     Active Substance: OMEPRAZOLE
     Indication: Gastrooesophageal reflux disease
     Dosage: 40 MILLIGRAM, QD
     Route: 048
     Dates: start: 2017
  6. KETOROLAC [Concomitant]
     Active Substance: KETOROLAC TROMETHAMINE
     Indication: Analgesic therapy
     Dosage: UNK
     Dates: start: 2013, end: 2017
  7. TORADOL [Concomitant]
     Active Substance: KETOROLAC TROMETHAMINE
     Indication: Analgesic therapy
     Dosage: UNK
     Dates: start: 2013
  8. AZITHROMYCIN [Concomitant]
     Active Substance: AZITHROMYCIN
     Indication: Infection
     Dosage: UNK
     Dates: start: 2009
  9. CEPHALEXIN [Concomitant]
     Active Substance: CEPHALEXIN
     Indication: Infection
     Dosage: UNK
     Dates: start: 2011
  10. CIPROFLOXACIN [Concomitant]
     Active Substance: CIPROFLOXACIN
     Indication: Infection
     Dosage: UNK
     Dates: start: 2009, end: 2011
  11. LEVOFLOXACIN [Concomitant]
     Active Substance: LEVOFLOXACIN
     Indication: Infection
     Dosage: UNK
     Dates: start: 2011, end: 2014
  12. LEVAQUIN [Concomitant]
     Active Substance: LEVOFLOXACIN
     Indication: Infection
     Dosage: UNK
     Dates: start: 2009
  13. MINOCYCLINE [Concomitant]
     Active Substance: MINOCYCLINE HYDROCHLORIDE
     Indication: Infection
     Dosage: UNK
     Dates: start: 2009
  14. TOBRAMYCIN [Concomitant]
     Active Substance: TOBRAMYCIN
     Indication: Infection
     Dosage: UNK
     Dates: start: 2010
  15. SULFAMETHOXAZOLE\TRIMETHOPRIM [Concomitant]
     Active Substance: SULFAMETHOXAZOLE\TRIMETHOPRIM
     Indication: Infection
     Dosage: UNK
     Dates: start: 2009
  16. LISINOPRIL [Concomitant]
     Active Substance: LISINOPRIL
     Indication: Hypertension
     Dosage: UNK
     Dates: start: 2010
  17. HYDROCHLOROTHIAZIDE\VALSARTAN [Concomitant]
     Active Substance: HYDROCHLOROTHIAZIDE\VALSARTAN
     Indication: Hypertension
     Dosage: UNK
     Dates: start: 2012, end: 2017
  18. DIOVAN [Concomitant]
     Active Substance: VALSARTAN
     Indication: Hypertension
     Dosage: UNK
     Dates: start: 2008, end: 2017
  19. SPIRONOLACTONE [Concomitant]
     Active Substance: SPIRONOLACTONE
     Indication: Hypertension
     Dosage: UNK
     Dates: start: 2016, end: 2021
  20. ALDACTONE [Concomitant]
     Active Substance: SPIRONOLACTONE
     Indication: Hypertension
     Dosage: UNK
     Dates: start: 2021
  21. ATORVASTATIN [Concomitant]
     Active Substance: ATORVASTATIN
     Indication: Blood cholesterol increased
     Dosage: UNK
     Dates: start: 2017
  22. LIPITOR [Concomitant]
     Active Substance: ATORVASTATIN CALCIUM
     Indication: Blood cholesterol increased
     Dosage: UNK
     Dates: start: 2017
  23. ROSUVASTATIN [Concomitant]
     Active Substance: ROSUVASTATIN
     Indication: Blood cholesterol increased
     Dosage: UNK
     Dates: start: 2020
  24. SIMVASTATIN [Concomitant]
     Active Substance: SIMVASTATIN
     Indication: Blood cholesterol increased
     Dosage: UNK
     Dates: start: 2009, end: 2013
  25. ZOCOR [Concomitant]
     Active Substance: SIMVASTATIN
     Indication: Blood cholesterol increased
     Dosage: UNK
     Dates: start: 2013, end: 2014
  26. ASPIRIN [Concomitant]
     Active Substance: ASPIRIN
     Indication: Anticoagulant therapy
     Dosage: UNK
     Dates: start: 2010
  27. ZANTAC [Concomitant]
     Active Substance: RANITIDINE HYDROCHLORIDE
     Dosage: UNK
     Dates: start: 2019
  28. TUMS [Concomitant]
     Active Substance: CALCIUM CARBONATE
     Dosage: UNK
     Dates: start: 2007, end: 2009
  29. ROLAIDS [Concomitant]
     Active Substance: CALCIUM CARBONATE\MAGNESIUM HYDROXIDE
     Dosage: UNK
     Dates: start: 2014, end: 2016
  30. RANITIDINE HYDROCHLORIDE [Concomitant]
     Active Substance: RANITIDINE HYDROCHLORIDE
     Dosage: UNK

REACTIONS (2)
  - Chronic kidney disease [Not Recovered/Not Resolved]
  - Gastrooesophageal reflux disease [Not Recovered/Not Resolved]

NARRATIVE: CASE EVENT DATE: 20170101
